FAERS Safety Report 7603488-8 (Version None)
Quarter: 2011Q3

REPORT INFORMATION
  Report Type: 
  Country: None (occurrence: None)
  Receive Date: 20110711
  Receipt Date: 20110711
  Transmission Date: 20111222
  Serious: No
  Sender: FDA-Public Use
  Company Number: None

PATIENT
  Age: 37 Year
  Sex: Female
  Weight: 54.4316 kg

DRUGS (1)
  1. EXTRA STRENGTH TYLENOL [Suspect]
     Indication: HEADACHE
     Dosage: TAKE 2 GELCAPS 4-6 HOURS PO
     Route: 048
     Dates: start: 20110506, end: 20110506

REACTIONS (7)
  - RESPIRATORY RATE DECREASED [None]
  - IMPAIRED DRIVING ABILITY [None]
  - PAIN [None]
  - HYPOPNOEA [None]
  - FEELING ABNORMAL [None]
  - INFLUENZA [None]
  - DYSARTHRIA [None]
